FAERS Safety Report 8061901-9 (Version None)
Quarter: 2012Q1

REPORT INFORMATION
  Report Type: 
  Country: None (occurrence: None)
  Receive Date: 20120117
  Receipt Date: 20120106
  Transmission Date: 20120608
  Serious: Yes (Death, Hospitalization, Other)
  Sender: FDA-Public Use
  Company Number: ADR-2012-00047

PATIENT
  Sex: Female

DRUGS (1)
  1. BACLOFEN [Suspect]
     Indication: MUSCLE SPASTICITY
     Dosage: SEE B5

REACTIONS (21)
  - CHOLELITHIASIS [None]
  - PNEUMONIA [None]
  - THROMBOCYTOPENIA [None]
  - RESPIRATORY ACIDOSIS [None]
  - HEPATIC ENZYME INCREASED [None]
  - FUNGAL INFECTION [None]
  - RESPIRATORY FAILURE [None]
  - ATRIAL FIBRILLATION [None]
  - PARAPARESIS [None]
  - BLOOD BILIRUBIN INCREASED [None]
  - BACTERAEMIA [None]
  - MALNUTRITION [None]
  - RESPIRATORY DISTRESS [None]
  - URINARY TRACT INFECTION ENTEROCOCCAL [None]
  - ANAEMIA [None]
  - COAGULOPATHY [None]
  - PLATELET DISORDER [None]
  - CHRONIC LYMPHOCYTIC LEUKAEMIA [None]
  - HYPOKINESIA [None]
  - MUSCULAR WEAKNESS [None]
  - RETROPERITONEAL HAEMORRHAGE [None]
